FAERS Safety Report 19021192 (Version 1)
Quarter: 2021Q1

REPORT INFORMATION
  Report Type: Spontaneous
  Country: DE (occurrence: DE)
  Receive Date: 20210317
  Receipt Date: 20210317
  Transmission Date: 20210420
  Serious: Yes (Hospitalization)
  Sender: FDA-Public Use
  Company Number: DE-TEVA-2021-DE-1890265

PATIENT
  Age: 31 Year
  Sex: Female
  Weight: 73 kg

DRUGS (5)
  1. PANTOPRAZOL [Concomitant]
     Active Substance: PANTOPRAZOLE SODIUM
     Dosage: 4 DOSAGE FORMS DAILY; 20 MG, 2?0?2?0
  2. QUETIAPIN [Concomitant]
     Active Substance: QUETIAPINE
     Dosage: 100 MILLIGRAM DAILY; 0?0?0?1
  3. PREDNISOLON [Suspect]
     Active Substance: PREDNISOLONE
     Dosage: 15 MILLIGRAM DAILY; 1?0?0?0
     Route: 065
  4. FLUOXETIN [Concomitant]
     Active Substance: FLUOXETINE HYDROCHLORIDE
     Dosage: 2.5 DOSAGE FORMS DAILY; 20 MG, 2.5?0?0?0
  5. COLCHICUM [Suspect]
     Active Substance: COLCHICINE
     Dosage: 1 MILLIGRAM DAILY; 0.5 MG, 1?0?1?0

REACTIONS (7)
  - Haematemesis [Unknown]
  - Melaena [Unknown]
  - Abdominal pain [Unknown]
  - General physical health deterioration [Unknown]
  - Musculoskeletal pain [Unknown]
  - Abdominal distension [Unknown]
  - Abdominal pain upper [Unknown]
